FAERS Safety Report 4799251-6 (Version None)
Quarter: 2005Q4

REPORT INFORMATION
  Report Type: 
  Country: None (occurrence: None)
  Receive Date: 20051013
  Receipt Date: 20050928
  Transmission Date: 20060501
  Serious: Yes (Life-Threatening, Hospitalization)
  Sender: FDA-Public Use
  Company Number: 217749

PATIENT
  Age: 89 Year
  Sex: Female

DRUGS (8)
  1. RITUXAN [Suspect]
     Indication: NON-HODGKIN'S LYMPHOMA
     Dosage: 500 MG, INTRAVENOUS; 530 MG; 500 MG; 500 MG
     Route: 042
     Dates: start: 20050614, end: 20050816
  2. RITUXAN [Suspect]
     Indication: NON-HODGKIN'S LYMPHOMA
     Dosage: 500 MG, INTRAVENOUS; 530 MG; 500 MG; 500 MG
     Route: 042
     Dates: start: 20050705
  3. RITUXAN [Suspect]
     Indication: NON-HODGKIN'S LYMPHOMA
     Dosage: 500 MG, INTRAVENOUS; 530 MG; 500 MG; 500 MG
     Route: 042
     Dates: start: 20050726
  4. RITUXAN [Suspect]
     Indication: NON-HODGKIN'S LYMPHOMA
     Dosage: 500 MG, INTRAVENOUS; 530 MG; 500 MG; 500 MG
     Route: 042
     Dates: start: 20050816
  5. ADRIAMICIN (DOXORUBICIN, DOXORUBICN HYDROCHLORIDE) [Concomitant]
  6. CYCLOPHOSPHAMIDE [Concomitant]
  7. ONCOVIN [Concomitant]
  8. PREDNISONE [Concomitant]

REACTIONS (17)
  - ARRHYTHMIA [None]
  - BLOOD PRESSURE DECREASED [None]
  - BODY TEMPERATURE INCREASED [None]
  - CEREBRAL ARTERY OCCLUSION [None]
  - CEREBRAL HAEMORRHAGE [None]
  - CEREBRAL INFARCTION [None]
  - CHEST DISCOMFORT [None]
  - DYSLALIA [None]
  - EXTENSOR PLANTAR RESPONSE [None]
  - EYELID PTOSIS [None]
  - HEART RATE INCREASED [None]
  - HEMIPLEGIA [None]
  - HYPERVISCOSITY SYNDROME [None]
  - PALPITATIONS [None]
  - PARESIS [None]
  - THROMBOSIS [None]
  - VENTRICULAR EXTRASYSTOLES [None]
